FAERS Safety Report 19220776 (Version 1)
Quarter: 2021Q2

REPORT INFORMATION
  Report Type: Spontaneous
  Country: US (occurrence: US)
  Receive Date: 20210506
  Receipt Date: 20210506
  Transmission Date: 20210717
  Serious: Yes (Hospitalization)
  Sender: FDA-Public Use
  Company Number: US-SA-2021SA148042

PATIENT
  Age: 4 Year
  Sex: Female

DRUGS (14)
  1. LMX4 [Concomitant]
     Active Substance: LIDOCAINE
  2. DIPHENHYDRAMINE. [Concomitant]
     Active Substance: DIPHENHYDRAMINE
  3. VITAMIN C [Concomitant]
     Active Substance: ASCORBIC ACID
  4. DIPHENHYDRAMINE. [Concomitant]
     Active Substance: DIPHENHYDRAMINE
  5. EPINEPHRINE. [Concomitant]
     Active Substance: EPINEPHRINE
  6. HEPARIN [Concomitant]
     Active Substance: HEPARIN SODIUM
  7. HYDROXYZINE [Concomitant]
     Active Substance: HYDROXYZINE HYDROCHLORIDE
  8. VITAMIN D3 [Concomitant]
     Active Substance: CHOLECALCIFEROL
  9. MELATONIN [Concomitant]
     Active Substance: MELATONIN
  10. MIRALAX [Concomitant]
     Active Substance: POLYETHYLENE GLYCOL 3350
  11. ACETAMINOPHEN. [Concomitant]
     Active Substance: ACETAMINOPHEN
  12. ALDURAZYME [Suspect]
     Active Substance: LARONIDASE
     Dosage: 8.7 MG, QW
     Route: 041
     Dates: start: 20191003
  13. HYDROCORTISONE. [Concomitant]
     Active Substance: HYDROCORTISONE
  14. NORMAL SALINE [Concomitant]
     Active Substance: SODIUM CHLORIDE

REACTIONS (1)
  - Tonsillar disorder [Unknown]
